FAERS Safety Report 5895383-X (Version None)
Quarter: 2008Q3

REPORT INFORMATION
  Report Type: 
  Country: None (occurrence: None)
  Receive Date: 20080923
  Receipt Date: 20080923
  Transmission Date: 20090109
  Serious: Yes (Other)
  Sender: FDA-Public Use
  Company Number: None

PATIENT
  Age: 56 Year
  Sex: Female
  Weight: 69.4003 kg

DRUGS (2)
  1. NAPROXEN [Suspect]
     Indication: ARTHRALGIA
     Dosage: 2 X DAY
     Dates: start: 20080813, end: 20080823
  2. NAPROXEN [Suspect]
     Indication: ARTHRITIS
     Dosage: 2 X DAY
     Dates: start: 20080813, end: 20080823

REACTIONS (9)
  - GRIP STRENGTH DECREASED [None]
  - JOINT STIFFNESS [None]
  - JOINT SWELLING [None]
  - MOVEMENT DISORDER [None]
  - MUSCULAR WEAKNESS [None]
  - MUSCULOSKELETAL PAIN [None]
  - OEDEMA PERIPHERAL [None]
  - TINNITUS [None]
  - VISION BLURRED [None]
